FAERS Safety Report 5772901-3 (Version None)
Quarter: 2008Q2

REPORT INFORMATION
  Report Type: 
  Country: None (occurrence: None)
  Receive Date: 20080613
  Receipt Date: 20080604
  Transmission Date: 20081010
  Serious: Yes (Other)
  Sender: FDA-Public Use
  Company Number: US-PFIZER INC-2008047152

PATIENT
  Sex: Male
  Weight: 72.6 kg

DRUGS (1)
  1. LIPITOR [Suspect]
     Indication: BLOOD CHOLESTEROL
     Route: 048
     Dates: start: 20030101, end: 20030101

REACTIONS (8)
  - CHILLS [None]
  - HEPATITIS [None]
  - INFLUENZA LIKE ILLNESS [None]
  - LIVER DISORDER [None]
  - LYMPHADENITIS [None]
  - LYMPHOMA [None]
  - MYALGIA [None]
  - PYREXIA [None]
